FAERS Safety Report 8255634 (Version 10)
Quarter: 2012Q4

REPORT INFORMATION
  Report Type: 
  Country: CA (occurrence: CA)
  Receive Date: 20111118
  Receipt Date: 20121019
  Transmission Date: 20130627
  Serious: Yes (Hospitalization, Other)
  Sender: FDA-Public Use
  Company Number: CA-ROCHE-1013892

PATIENT
  Age: 46 Year
  Sex: Female

DRUGS (10)
  1. XOLAIR [Suspect]
     Indication: ASTHMA
     Route: 058
     Dates: start: 20100902, end: 2012
  2. PREDNISONE [Concomitant]
  3. SPIRIVA [Concomitant]
  4. ADVAIR [Concomitant]
  5. VENTOLIN [Concomitant]
  6. OMNARIS [Concomitant]
  7. PREVACID [Concomitant]
  8. FLU VACCINATION [Concomitant]
  9. WELLBUTRIN [Concomitant]
  10. ZOLOFT [Concomitant]

REACTIONS (17)
  - Dehydration [Unknown]
  - Depression [Unknown]
  - Gastroenteritis viral [Unknown]
  - Dysphonia [Unknown]
  - Malaise [Unknown]
  - Headache [Unknown]
  - Oropharyngeal pain [Recovered/Resolved]
  - Influenza [Unknown]
  - Nasopharyngitis [Unknown]
  - Nasal congestion [Unknown]
  - Dizziness [Unknown]
  - Cough [Recovering/Resolving]
  - Fatigue [Unknown]
  - Nausea [Unknown]
  - Vomiting [Unknown]
  - Migraine [Unknown]
  - Asthenia [Unknown]
